FAERS Safety Report 7314280-6 (Version None)
Quarter: 2011Q1

REPORT INFORMATION
  Report Type: 
  Country: None (occurrence: None)
  Receive Date: 20110225
  Receipt Date: 20100811
  Transmission Date: 20110831
  Serious: No
  Sender: FDA-Public Use
  Company Number: US-MYLANLABS-2010S1012008

PATIENT
  Age: 40 Year
  Sex: Male

DRUGS (14)
  1. CLARAVIS [Suspect]
     Route: 048
     Dates: start: 20100601, end: 20100621
  2. OXYCODONE [Concomitant]
     Dosage: ONCE A WEEK
  3. DILTIAZEM [Concomitant]
  4. AMITRIPTYLINE HCL [Concomitant]
  5. PRILOSEC [Concomitant]
  6. DIFLUNISAL [Concomitant]
  7. CLARAVIS [Suspect]
     Indication: ACNE
     Route: 048
     Dates: start: 20100522, end: 20100505
  8. TESTOSTERONE [Concomitant]
     Route: 061
  9. AMNESTEEM [Suspect]
     Route: 048
     Dates: start: 20100601, end: 20100621
  10. ZOCOR [Concomitant]
  11. CLARAVIS [Suspect]
     Route: 048
     Dates: start: 20100505, end: 20100520
  12. AMNESTEEM [Suspect]
     Indication: ACNE
     Route: 048
     Dates: start: 20100522, end: 20100505
  13. AMNESTEEM [Suspect]
     Route: 048
     Dates: start: 20100505, end: 20100520
  14. ALPRAZOLAM [Concomitant]

REACTIONS (6)
  - COSTOCHONDRITIS [None]
  - ARTHRALGIA [None]
  - PAIN [None]
  - ANGER [None]
  - MUSCULOSKELETAL CHEST PAIN [None]
  - DEPRESSED MOOD [None]
